FAERS Safety Report 5706349-4 (Version None)
Quarter: 2008Q2

REPORT INFORMATION
  Report Type: 
  Country: None (occurrence: None)
  Receive Date: 20080411
  Receipt Date: 20080403
  Transmission Date: 20081010
  Serious: Yes (Death, Hospitalization, Other)
  Sender: FDA-Public Use
  Company Number: FABR-1000082

PATIENT
  Sex: Male

DRUGS (1)
  1. FABRAZYME (AGALSIDASE BETA) POWDER FOR SOLUTION FOR INFUSION [Suspect]
     Indication: FABRY'S DISEASE
     Dosage: 70 MG, Q2W, INTRAVENOUS
     Route: 042
     Dates: end: 20071201

REACTIONS (7)
  - ACUTE ABDOMEN [None]
  - AORTIC ANEURYSM [None]
  - DIALYSIS [None]
  - GASTROINTESTINAL DISORDER [None]
  - INTESTINAL INFARCTION [None]
  - RENAL FAILURE ACUTE [None]
  - RESPIRATORY FAILURE [None]
